FAERS Safety Report 8065447-3 (Version None)
Quarter: 2011Q4

REPORT INFORMATION
  Report Type: 
  Country: None (occurrence: None)
  Receive Date: 20111221
  Receipt Date: 20110629
  Transmission Date: 20120403
  Serious: Yes (Hospitalization)
  Sender: FDA-Public Use
  Company Number: PHHY2011US58063

PATIENT
  Age: 32 Year
  Sex: Female
  Weight: 81.4 kg

DRUGS (1)
  1. EXJADE [Suspect]
     Indication: IRON OVERLOAD
     Dosage: 2000 MG, DAILY, ORAL
     Route: 048
     Dates: start: 20080409

REACTIONS (1)
  - SICKLE CELL ANAEMIA WITH CRISIS [None]
